FAERS Safety Report 6357968-6 (Version None)
Quarter: 2009Q3

REPORT INFORMATION
  Report Type: 
  Country: None (occurrence: None)
  Receive Date: 20090916
  Receipt Date: 20090914
  Transmission Date: 20100115
  Serious: Yes (Other)
  Sender: FDA-Public Use
  Company Number: US-BAYER-200924859NA

PATIENT
  Age: 34 Year
  Sex: Female
  Weight: 68 kg

DRUGS (2)
  1. OCELLA [Suspect]
     Indication: CONTRACEPTION
     Route: 048
     Dates: start: 20090301, end: 20090430
  2. OCELLA [Suspect]
     Route: 048
     Dates: start: 20080801, end: 20080901

REACTIONS (8)
  - CRYING [None]
  - DEPRESSION [None]
  - INDIFFERENCE [None]
  - LETHARGY [None]
  - MOBILITY DECREASED [None]
  - MOOD ALTERED [None]
  - PARANOIA [None]
  - PERSONALITY CHANGE [None]
